FAERS Safety Report 8463826-3 (Version None)
Quarter: 2012Q2

REPORT INFORMATION
  Report Type: 
  Country: None (occurrence: None)
  Receive Date: 20120625
  Receipt Date: 20120611
  Transmission Date: 20120825
  Serious: No
  Sender: FDA-Public Use
  Company Number: US-ASTRAZENECA-2012SE38990

PATIENT
  Age: 73 Year
  Sex: Male
  Weight: 99.3 kg

DRUGS (9)
  1. SYMBICORT [Suspect]
     Dosage: 160/4.5 MCG, 1 PUFF, IN THE MORNING, AS REQUIRED
     Route: 055
  2. FAMOTIDINE [Concomitant]
  3. GABAPENTIN [Concomitant]
  4. LOVASTATIN [Concomitant]
  5. HYDROCHLOROTHIAZIDE [Concomitant]
  6. SYMBICORT [Suspect]
     Indication: CHRONIC OBSTRUCTIVE PULMONARY DISEASE
     Dosage: 160/4.5 MCG, TWO PUFFS, TWO TIMES A DAY
     Route: 055
  7. METOPROLOL TARTRATE [Concomitant]
  8. LISINOPRIL [Concomitant]
  9. ASPIRIN [Concomitant]

REACTIONS (3)
  - INTENTIONAL DRUG MISUSE [None]
  - DRUG DOSE OMISSION [None]
  - DYSPNOEA [None]
